FAERS Safety Report 18928482 (Version 2)
Quarter: 2021Q2

REPORT INFORMATION
  Report Type: Report from Study
  Country: US (occurrence: US)
  Receive Date: 20210223
  Receipt Date: 20210601
  Transmission Date: 20210717
  Serious: Yes (Other)
  Sender: FDA-Public Use
  Company Number: US-TAKEDA-US202030439

PATIENT
  Age: 58 Year
  Sex: Female

DRUGS (1)
  1. HUMAN IMMUNOGLOBULIN; HYALURONIDASE [Suspect]
     Active Substance: HUMAN IMMUNOGLOBULIN G\HYALURONIDASE RECOMBINANT HUMAN
     Indication: PRIMARY IMMUNODEFICIENCY SYNDROME
     Dosage: 47.5 GRAM
     Route: 065

REACTIONS (9)
  - Multiple allergies [Unknown]
  - Fluid overload [Unknown]
  - Herpes zoster [Not Recovered/Not Resolved]
  - Intervertebral disc protrusion [Unknown]
  - Hypoaesthesia [Unknown]
  - Pulmonary arterial hypertension [Unknown]
  - Carpal tunnel syndrome [Unknown]
  - Needle issue [Unknown]
  - Sneezing [Unknown]

NARRATIVE: CASE EVENT DATE: 20201221
